FAERS Safety Report 10337299 (Version 4)
Quarter: 2014Q4

REPORT INFORMATION
  Report Type: Spontaneous
  Country: IT (occurrence: IT)
  Receive Date: 20140723
  Receipt Date: 20141024
  Transmission Date: 20150528
  Serious: Yes (Hospitalization)
  Sender: FDA-Public Use
  Company Number: PHHY2014IT088505

PATIENT
  Sex: Female

DRUGS (7)
  1. LORAZEPAM. [Suspect]
     Active Substance: LORAZEPAM
     Indication: DRUG ABUSE
     Dosage: 2 MG, QD
     Route: 048
     Dates: start: 20140522
  2. DEPAKINE [Suspect]
     Active Substance: VALPROATE SODIUM
     Indication: DRUG ABUSE
     Dosage: 300 MG, QD
     Route: 048
     Dates: start: 20140522
  3. CONCOR [Suspect]
     Active Substance: BISOPROLOL FUMARATE
     Indication: HYPERTENSION
  4. CONCOR [Suspect]
     Active Substance: BISOPROLOL FUMARATE
     Indication: DRUG ABUSE
     Dosage: 10 MG, QD
     Route: 048
     Dates: start: 20140522
  5. CYMBALTA [Suspect]
     Active Substance: DULOXETINE HYDROCHLORIDE
     Indication: DRUG ABUSE
     Dosage: 30 MG, QD
     Route: 048
     Dates: start: 20140522
  6. CYMBALTA [Suspect]
     Active Substance: DULOXETINE HYDROCHLORIDE
     Indication: DEPRESSION
  7. TACHIPIRINA [Suspect]
     Active Substance: ACETAMINOPHEN
     Indication: DRUG ABUSE
     Dosage: 3000 MG
     Route: 048
     Dates: start: 20140522

REACTIONS (3)
  - Drug abuse [Recovered/Resolved]
  - Loss of consciousness [Recovered/Resolved]
  - Somnolence [Recovered/Resolved]

NARRATIVE: CASE EVENT DATE: 20140522
